FAERS Safety Report 24250608 (Version 1)
Quarter: 2024Q3

REPORT INFORMATION
  Report Type: Spontaneous
  Country: US (occurrence: US)
  Receive Date: 20240826
  Receipt Date: 20240826
  Transmission Date: 20241017
  Serious: No
  Sender: GALDERMA
  Company Number: US-GALDERMA-US2024012382

PATIENT

DRUGS (7)
  1. PROACTIV MD ADAPALENE ACNE TREATMENT [Suspect]
     Active Substance: ADAPALENE
     Indication: Acne
     Dosage: 1 DOSAGE FORM, APPLIED ON FACE
     Route: 061
     Dates: start: 202402, end: 202406
  2. Proactiv MD Ultra Gentle Cleanser [Concomitant]
     Indication: Acne
  3. COSMETICS [Concomitant]
     Active Substance: COSMETICS
     Indication: Acne
  4. PROACTIV ACNE BODY WASH [Concomitant]
     Active Substance: SALICYLIC ACID
     Indication: Acne
  5. PROACTIV SOLUTION BLACKHEAD DISSOLVING [Concomitant]
     Active Substance: SALICYLIC ACID
     Indication: Acne
  6. COSMETICS [Concomitant]
     Active Substance: COSMETICS
     Indication: Acne
  7. COSMETICS [Concomitant]
     Active Substance: COSMETICS
     Indication: Acne

REACTIONS (1)
  - Drug ineffective [Unknown]
